FAERS Safety Report 7597423-9 (Version None)
Quarter: 2011Q3

REPORT INFORMATION
  Report Type: 
  Country: None (occurrence: None)
  Receive Date: 20110708
  Receipt Date: 20110627
  Transmission Date: 20111222
  Serious: Yes (Hospitalization)
  Sender: FDA-Public Use
  Company Number: PHHY2011FR58294

PATIENT
  Age: 32 Year
  Sex: Male

DRUGS (6)
  1. NEORAL [Suspect]
     Dosage: 75 MG, BID
     Route: 048
     Dates: start: 20090401, end: 20090627
  2. PREDNISOLONE [Suspect]
     Dosage: UNK UKN, UNK
     Dates: start: 20090301, end: 20090801
  3. REMICADE [Concomitant]
     Dosage: 5 MG/KG, QD
     Dates: start: 20090630
  4. REMICADE [Concomitant]
     Dosage: 10 MG/KG, QD
     Dates: start: 20090903
  5. AZATHIOPRINE SODIUM [Suspect]
     Dosage: 50 MG, UNK
     Dates: start: 20090101
  6. REMICADE [Concomitant]
     Dosage: 5 MG/KG, QD
     Dates: start: 20090715

REACTIONS (3)
  - PNEUMATOSIS INTESTINALIS [None]
  - PYREXIA [None]
  - MUCOUS STOOLS [None]
